FAERS Safety Report 4746294-4 (Version None)
Quarter: 2005Q3

REPORT INFORMATION
  Report Type: 
  Country: None (occurrence: None)
  Receive Date: 20050808
  Receipt Date: 20050623
  Transmission Date: 20060218
  Serious: Yes (Other)
  Sender: FDA-Public Use
  Company Number: 1632

PATIENT
  Sex: Female

DRUGS (2)
  1. ACCUTANE [Suspect]
     Dosage: 40MG, QD,PO
     Route: 048
  2. AMNESTEEM [Suspect]
     Dosage: 40MG, QD,PO
     Route: 048
     Dates: start: 20050301

REACTIONS (1)
  - DRUG EXPOSURE DURING PREGNANCY [None]
